FAERS Safety Report 9284396 (Version 1)
Quarter: 2013Q2

REPORT INFORMATION
  Report Type: Spontaneous
  Country: TR (occurrence: TR)
  Receive Date: 20130510
  Receipt Date: 20130510
  Transmission Date: 20140414
  Serious: Yes (Hospitalization)
  Sender: FDA-Public Use
  Company Number: TR-ABBOTT-13X-161-1087861-00

PATIENT
  Age: 53 Year
  Sex: Female

DRUGS (3)
  1. CLARITHROMYCIN [Suspect]
     Indication: LOWER RESPIRATORY TRACT INFECTION
     Dosage: 1000 MG/DAY
  2. FLUOXETINE [Interacting]
     Indication: RESTLESS LEGS SYNDROME
     Dosage: 20 MG/DAY
  3. ERGOTAMINE TARTRATE [Interacting]
     Indication: MIGRAINE
     Dosage: 1.5 MG/DAY

REACTIONS (3)
  - Stress cardiomyopathy [Recovered/Resolved]
  - Drug interaction [Unknown]
  - Toxicity to various agents [Unknown]
